FAERS Safety Report 18794206 (Version 1)
Quarter: 2021Q1

REPORT INFORMATION
  Report Type: Spontaneous
  Country: US (occurrence: US)
  Receive Date: 20210127
  Receipt Date: 20210127
  Transmission Date: 20210419
  Serious: No
  Sender: FDA-Public Use
  Company Number: None

PATIENT
  Age: 63 Year
  Sex: Female
  Weight: 111.5 kg

DRUGS (21)
  1. VITAMIN C [Concomitant]
     Active Substance: ASCORBIC ACID
  2. SPRYCEL [Suspect]
     Active Substance: DASATINIB
     Indication: CHRONIC MYELOID LEUKAEMIA
     Route: 048
     Dates: start: 20210101
  3. IRON [Concomitant]
     Active Substance: IRON
  4. FLUCONAZOLE. [Concomitant]
     Active Substance: FLUCONAZOLE
  5. FLUTICASONE PROPIONATE. [Concomitant]
     Active Substance: FLUTICASONE PROPIONATE
  6. GABAPENTIN. [Concomitant]
     Active Substance: GABAPENTIN
  7. KENALOG [Concomitant]
     Active Substance: TRIAMCINOLONE ACETONIDE
  8. OXYCODONE HYDROCHLORIDE. [Concomitant]
     Active Substance: OXYCODONE HYDROCHLORIDE
  9. TRAMADOL HCL [Concomitant]
     Active Substance: TRAMADOL HYDROCHLORIDE
  10. LOPRESSOR [Concomitant]
     Active Substance: METOPROLOL TARTRATE
  11. PREVACID [Concomitant]
     Active Substance: LANSOPRAZOLE
  12. MELOXICAM. [Concomitant]
     Active Substance: MELOXICAM
  13. ALBUTEROL SULFATE HFA [Concomitant]
     Active Substance: ALBUTEROL SULFATE
  14. ALLOPURINOL. [Concomitant]
     Active Substance: ALLOPURINOL
  15. CLARITIN [Concomitant]
     Active Substance: LORATADINE
  16. FOLIC ACID. [Concomitant]
     Active Substance: FOLIC ACID
  17. LOSARTAN POTASSIUM. [Concomitant]
     Active Substance: LOSARTAN POTASSIUM
  18. LASIX [Concomitant]
     Active Substance: FUROSEMIDE
  19. AZITHROMYCIN ANHYDROUS. [Concomitant]
     Active Substance: AZITHROMYCIN ANHYDROUS
  20. VITAMIN B12 [Concomitant]
     Active Substance: CYANOCOBALAMIN
  21. VITAMIN D3 [Concomitant]
     Active Substance: CHOLECALCIFEROL

REACTIONS (2)
  - Platelet count decreased [None]
  - Sinusitis [None]

NARRATIVE: CASE EVENT DATE: 20210118
